FAERS Safety Report 9486387 (Version 1)
Quarter: 2013Q3

REPORT INFORMATION
  Report Type: Spontaneous
  Country: ES (occurrence: ES)
  Receive Date: 20130829
  Receipt Date: 20130829
  Transmission Date: 20140515
  Serious: Yes (Hospitalization)
  Sender: FDA-Public Use
  Company Number: ES-VERTEX PHARMACEUTICALS INC-2013-009139

PATIENT
  Age: 64 Year
  Sex: Male

DRUGS (1)
  1. INCIVO [Suspect]
     Indication: HEPATITIS C
     Dosage: 750 MG, TID
     Route: 048
     Dates: start: 20130429, end: 20130719

REACTIONS (3)
  - Pyrexia [Recovered/Resolved]
  - Rash papular [Recovered/Resolved]
  - Toxic skin eruption [Recovered/Resolved]
